FAERS Safety Report 12780049 (Version 1)
Quarter: 2016Q3

REPORT INFORMATION
  Report Type: Spontaneous
  Country: US (occurrence: US)
  Receive Date: 20160926
  Receipt Date: 20160926
  Transmission Date: 20161109
  Serious: No
  Sender: FDA-Public Use
  Company Number: None

PATIENT
  Age: 4 Year
  Sex: Male
  Weight: 17.1 kg

DRUGS (4)
  1. BABY NASAL SPRAY/DROPS [Suspect]
     Active Substance: SODIUM CHLORIDE
     Indication: NASAL CONGESTION
     Dosage: OTHER STRENGTH:;OTHER DOSE:;OTHER FREQUENCY:;OTHER ROUTE:NASAL SPRAYED
     Dates: start: 20160801, end: 20160831
  2. FLINSTONES GUMMIES (COMPLETE) [Concomitant]
  3. BABY NASAL SPRAY/DROPS [Suspect]
     Active Substance: SODIUM CHLORIDE
     Indication: RHINORRHOEA
     Dosage: OTHER STRENGTH:;OTHER DOSE:;OTHER FREQUENCY:;OTHER ROUTE:NASAL SPRAYED
     Dates: start: 20160801, end: 20160831
  4. CHILDREN^S MULTIVITAMIN [Concomitant]

REACTIONS (4)
  - Pain [None]
  - Hyperhidrosis [None]
  - Burning sensation [None]
  - Screaming [None]

NARRATIVE: CASE EVENT DATE: 20160829
